FAERS Safety Report 14204408 (Version 1)
Quarter: 2017Q4

REPORT INFORMATION
  Report Type: Spontaneous
  Country: US (occurrence: US)
  Receive Date: 20171119
  Receipt Date: 20171119
  Transmission Date: 20180321
  Serious: Yes (Life-Threatening)
  Sender: FDA-Public Use
  Company Number: None

PATIENT
  Age: 35 Year
  Sex: Female
  Weight: 58.5 kg

DRUGS (2)
  1. MULTI VITAMIN [Concomitant]
     Active Substance: VITAMINS
  2. CIPRODEX [Suspect]
     Active Substance: CIPROFLOXACIN HYDROCHLORIDE\DEXAMETHASONE
     Indication: EAR INFECTION
     Dosage: ?          QUANTITY:7.5 DROP(S);?

REACTIONS (6)
  - Fatigue [None]
  - Vaginal haemorrhage [None]
  - Deafness [None]
  - Progesterone decreased [None]
  - Pain [None]
  - Maternal exposure timing unspecified [None]

NARRATIVE: CASE EVENT DATE: 20150210
